FAERS Safety Report 4369119-8 (Version None)
Quarter: 2004Q2

REPORT INFORMATION
  Report Type: 
  Country: None (occurrence: None)
  Receive Date: 20040528
  Receipt Date: 20040520
  Transmission Date: 20050107
  Serious: No
  Sender: FDA-Public Use
  Company Number: 2003185845JP

PATIENT
  Age: 54 Year
  Sex: Female

DRUGS (4)
  1. DOXORUBICIN HYDROCHLORIDE [Suspect]
     Indication: BREAST CANCER
     Dosage: IV
  2. EPIRUBICIN [Suspect]
     Indication: BREAST CANCER
     Dosage: INTRA-ARTERIAL
     Route: 013
  3. CYCLOPHOSPHAMIDE [Suspect]
     Indication: BREAST CANCER
     Dosage: IV
     Route: 042
  4. FLUOROURACIL [Concomitant]

REACTIONS (2)
  - ACUTE PROMYELOCYTIC LEUKAEMIA [None]
  - PYREXIA [None]
